FAERS Safety Report 4848648-4 (Version None)
Quarter: 2005Q4

REPORT INFORMATION
  Report Type: 
  Country: None (occurrence: None)
  Receive Date: 20051206
  Receipt Date: 20051123
  Transmission Date: 20060501
  Serious: Yes (Hospitalization, Other)
  Sender: FDA-Public Use
  Company Number: 2005160623

PATIENT
  Age: 50 Year
  Sex: Female
  Weight: 80 kg

DRUGS (5)
  1. ZYVOX [Suspect]
     Indication: SKIN INFECTION
     Dosage: 1200 MG (2 IN 1 D) INTRAVENOUS
     Route: 042
     Dates: start: 20051118, end: 20051122
  2. TEICOPLANIN (TEICOPLANIN) [Concomitant]
  3. RIFAMPICIN [Concomitant]
  4. CIPROFLOXACIN [Concomitant]
  5. VANCOMYCIN [Concomitant]

REACTIONS (1)
  - UNEVALUABLE EVENT [None]
